FAERS Safety Report 11912029 (Version 1)
Quarter: 2016Q1

REPORT INFORMATION
  Report Type: Spontaneous
  Country: US (occurrence: US)
  Receive Date: 20160112
  Receipt Date: 20160112
  Transmission Date: 20160526
  Serious: Yes (Life-Threatening, Hospitalization, Other)
  Sender: FDA-Public Use
  Company Number: US-MYLANLABS-2016M1001133

PATIENT

DRUGS (1)
  1. METFORMIN [Suspect]
     Active Substance: METFORMIN HYDROCHLORIDE
     Indication: DIABETES MELLITUS
     Route: 065

REACTIONS (5)
  - Diarrhoea [Recovered/Resolved]
  - Lactic acidosis [Recovered/Resolved]
  - Acute kidney injury [Recovering/Resolving]
  - Toxicity to various agents [Recovering/Resolving]
  - Distributive shock [Recovering/Resolving]
